FAERS Safety Report 7062312-5 (Version None)
Quarter: 2010Q4

REPORT INFORMATION
  Report Type: 
  Country: None (occurrence: None)
  Receive Date: 20101026
  Receipt Date: 20101015
  Transmission Date: 20110411
  Serious: Yes (Other)
  Sender: FDA-Public Use
  Company Number: IE-B.I. PHARMACEUTICALS,INC./RIDGEFIELD-2010-UK-01012UK

PATIENT
  Age: 79 Year
  Sex: Male

DRUGS (1)
  1. PRADAXA [Suspect]
     Indication: THROMBOSIS PROPHYLAXIS
     Dosage: 150MG QD
     Route: 048
     Dates: start: 20100616

REACTIONS (1)
  - DEEP VEIN THROMBOSIS [None]
